FAERS Safety Report 16855022 (Version 1)
Quarter: 2019Q3

REPORT INFORMATION
  Report Type: Spontaneous
  Country: US (occurrence: US)
  Receive Date: 20190805
  Receipt Date: 20190805
  Transmission Date: 20191005
  Serious: No
  Sender: FDA-Public Use
  Company Number: None

PATIENT
  Age: 89 Year
  Sex: Female
  Weight: 49.9 kg

DRUGS (8)
  1. PRESERVISION AREDS [Concomitant]
     Active Substance: MINERALS\VITAMINS
  2. ELIQUIS [Concomitant]
     Active Substance: APIXABAN
  3. SYNTHROID [Concomitant]
     Active Substance: LEVOTHYROXINE SODIUM
  4. PRALUENT [Suspect]
     Active Substance: ALIROCUMAB
     Indication: BLOOD CHOLESTEROL INCREASED
     Dosage: ?          QUANTITY:1 DF DOSAGE FORM;OTHER FREQUENCY:EVERY 2 WEEKS;?
     Route: 058
     Dates: start: 20190622, end: 20190629
  5. DOFETILIDE. [Concomitant]
     Active Substance: DOFETILIDE
  6. BYSTOLIIC [Concomitant]
  7. MAGNESIUM [Concomitant]
     Active Substance: MAGNESIUM
  8. VITAMIN D3 [Concomitant]
     Active Substance: CHOLECALCIFEROL

REACTIONS (3)
  - Rash [None]
  - Vasculitis [None]
  - Pruritus [None]

NARRATIVE: CASE EVENT DATE: 20190627
